FAERS Safety Report 8478100-9 (Version None)
Quarter: 2012Q2

REPORT INFORMATION
  Report Type: 
  Country: None (occurrence: None)
  Receive Date: 20120629
  Receipt Date: 20120621
  Transmission Date: 20120825
  Serious: Yes (Death, Other)
  Sender: FDA-Public Use
  Company Number: GB-UCBSA-056549

PATIENT
  Age: 80 Year
  Sex: Female
  Weight: 53 kg

DRUGS (5)
  1. LACTULOSE [Concomitant]
  2. KEPPRA [Suspect]
     Indication: PARTIAL SEIZURES
  3. ACETAMINOPHEN [Concomitant]
  4. SENNA-MINT WAF [Concomitant]
  5. LETROZOLE [Concomitant]
     Indication: BREAST CANCER

REACTIONS (2)
  - ILEUS PARALYTIC [None]
  - NEOPLASM MALIGNANT [None]
